FAERS Safety Report 15099414 (Version 1)
Quarter: 2018Q3

REPORT INFORMATION
  Report Type: Spontaneous
  Country: QA (occurrence: QA)
  Receive Date: 20180702
  Receipt Date: 20180702
  Transmission Date: 20181010
  Serious: Yes (Other)
  Sender: FDA-Public Use
  Company Number: PHHY2018QA030416

PATIENT
  Age: 7 Year
  Sex: Male

DRUGS (6)
  1. METHOTREXATE. [Suspect]
     Active Substance: METHOTREXATE
     Indication: OSTEOMYELITIS
     Dosage: 7 MG/KG, Q4W
     Route: 065
  2. METHOTREXATE. [Suspect]
     Active Substance: METHOTREXATE
     Dosage: 7 MG/KG, QW
     Route: 065
  3. PAMIDRONATE [Suspect]
     Active Substance: PAMIDRONATE DISODIUM
     Indication: OSTEOMYELITIS
     Dosage: UNK
     Route: 065
  4. METHOTREXATE. [Suspect]
     Active Substance: METHOTREXATE
     Dosage: 7 MG/KG, EVERY 6 WEEKS
     Route: 065
  5. ACZ885 [Suspect]
     Active Substance: CANAKINUMAB
     Indication: OSTEOMYELITIS
     Dosage: 5 MG/KG EVERY 8 WEEKS
     Route: 058
  6. INFLIXIMAB [Suspect]
     Active Substance: INFLIXIMAB
     Indication: OSTEOMYELITIS
     Dosage: UNK
     Route: 065

REACTIONS (4)
  - Chronic recurrent multifocal osteomyelitis [Unknown]
  - Osteomyelitis [Unknown]
  - Product use in unapproved indication [Unknown]
  - Drug resistance [Unknown]
